FAERS Safety Report 11707675 (Version 1)
Quarter: 2015Q4

REPORT INFORMATION
  Report Type: Spontaneous
  Country: CA (occurrence: CA)
  Receive Date: 20151106
  Receipt Date: 20151106
  Transmission Date: 20160304
  Serious: Yes (Other)
  Sender: FDA-Public Use
  Company Number: CA-ASTRAZENECA-2015SF07167

PATIENT
  Age: 62 Year
  Sex: Male

DRUGS (1)
  1. FORXIGA [Suspect]
     Active Substance: DAPAGLIFLOZIN
     Indication: TYPE 2 DIABETES MELLITUS
     Route: 048
     Dates: start: 20150201, end: 20150622

REACTIONS (5)
  - Diabetic ketoacidosis [Unknown]
  - Influenza [Unknown]
  - Renal impairment [Unknown]
  - Vomiting [Unknown]
  - Abdominal pain [Unknown]
